FAERS Safety Report 7482638-0 (Version None)
Quarter: 2011Q2

REPORT INFORMATION
  Report Type: 
  Country: None (occurrence: None)
  Receive Date: 20110516
  Receipt Date: 20110504
  Transmission Date: 20111010
  Serious: Yes (Other)
  Sender: FDA-Public Use
  Company Number: PHHY2011US37872

PATIENT

DRUGS (1)
  1. AREDIA [Suspect]

REACTIONS (3)
  - EXTRAVASATION [None]
  - VEIN DISORDER [None]
  - HYPERSENSITIVITY [None]
